FAERS Safety Report 5950921-3 (Version None)
Quarter: 2008Q4

REPORT INFORMATION
  Report Type: 
  Country: None (occurrence: None)
  Receive Date: 20081112
  Receipt Date: 20081031
  Transmission Date: 20090506
  Serious: Yes (Hospitalization)
  Sender: FDA-Public Use
  Company Number: JP-PFIZER INC-2008092763

PATIENT
  Age: 50 Year
  Sex: Male

DRUGS (5)
  1. ALDACTONE [Suspect]
     Indication: CARDIAC FAILURE
     Dosage: DAILY DOSE:50MG
     Route: 048
     Dates: end: 20080101
  2. WARFARIN SODIUM [Suspect]
     Dosage: DAILY DOSE:3MG
     Dates: end: 20080101
  3. RENIVACE [Concomitant]
     Route: 048
     Dates: start: 20080909, end: 20080101
  4. ARTIST [Concomitant]
     Dates: start: 20080911
  5. FLUITRAN [Concomitant]
     Dates: end: 20080101

REACTIONS (1)
  - THROMBOCYTOPENIA [None]
